FAERS Safety Report 5163907-6 (Version None)
Quarter: 2006Q4

REPORT INFORMATION
  Report Type: 
  Country: None (occurrence: None)
  Receive Date: 20061204
  Receipt Date: 20060419
  Transmission Date: 20070319
  Serious: Yes (Death, Life-Threatening, Hospitalization, Disabling, Other)
  Sender: FDA-Public Use
  Company Number: KR-ELI_LILLY_AND_COMPANY-KR200604002926

PATIENT
  Age: 56 Year
  Sex: Female
  Weight: 54.5 kg

DRUGS (7)
  1. GEMCITABINE HCL [Suspect]
     Indication: NON-SMALL CELL LUNG CANCER
     Dosage: 1250 MG/M2, D1,8/Q21D
     Route: 042
     Dates: start: 20041006
  2. CISPLATIN [Suspect]
     Indication: NON-SMALL CELL LUNG CANCER
     Dosage: 75 MG/M2, D1/Q21D
     Route: 042
     Dates: start: 20041007
  3. SYNTHROID [Concomitant]
     Indication: HYPOTHYROIDISM
     Dosage: UNK, UNK
     Dates: start: 20040724
  4. DEPAKENE [Concomitant]
     Indication: CONVULSION
     Dosage: UNK, UNK
     Dates: start: 20050325
  5. WARFARIN SODIUM [Concomitant]
     Indication: DEEP VEIN THROMBOSIS
     Dosage: UNK, UNK
     Dates: start: 20050420
  6. HUMALOG /GFR/ [Concomitant]
     Indication: DIABETES MELLITUS
     Dosage: UNK, UNK
     Dates: start: 20050627
  7. RISPERDAL /SWE/ [Concomitant]
     Indication: DISORIENTATION
     Dosage: UNK, UNK
     Dates: start: 20050705

REACTIONS (13)
  - CARDIAC ARREST [None]
  - CONDITION AGGRAVATED [None]
  - DEEP VEIN THROMBOSIS [None]
  - HYPOXIA [None]
  - LUNG CONSOLIDATION [None]
  - METABOLIC ENCEPHALOPATHY [None]
  - MYOCARDIAL ISCHAEMIA [None]
  - PNEUMONIA ASPIRATION [None]
  - PULMONARY EMBOLISM [None]
  - RESPIRATORY ARREST [None]
  - SINUS TACHYCARDIA [None]
  - VOMITING [None]
  - WHITE BLOOD CELL COUNT DECREASED [None]
